FAERS Safety Report 12249043 (Version 1)
Quarter: 2016Q2

REPORT INFORMATION
  Report Type: Spontaneous
  Country: US (occurrence: US)
  Receive Date: 20160408
  Receipt Date: 20160408
  Transmission Date: 20160815
  Serious: Yes (Other)
  Sender: FDA-Public Use
  Company Number: US-BRISTOL-MYERS SQUIBB COMPANY-BMS-2016-026350

PATIENT
  Sex: Female
  Weight: 49.89 kg

DRUGS (1)
  1. BARACLUDE [Suspect]
     Active Substance: ENTECAVIR
     Indication: LIVER DISORDER
     Dosage: 0.5 MG, UNK
     Route: 065

REACTIONS (11)
  - Mood altered [Unknown]
  - Fatigue [Unknown]
  - Carpal tunnel syndrome [Unknown]
  - Arthropathy [Unknown]
  - Malaise [Unknown]
  - Incontinence [Unknown]
  - Musculoskeletal discomfort [Unknown]
  - Arthralgia [Unknown]
  - Memory impairment [Unknown]
  - Arthritis [Unknown]
  - Hypoaesthesia [Unknown]
